FAERS Safety Report 12633704 (Version 1)
Quarter: 2016Q3

REPORT INFORMATION
  Report Type: Spontaneous
  Country: JP (occurrence: JP)
  Receive Date: 20160808
  Receipt Date: 20160808
  Transmission Date: 20161109
  Serious: Yes (Hospitalization)
  Sender: FDA-Public Use
  Company Number: JP-JNJFOC-20160805395

PATIENT
  Age: 7 Decade
  Sex: Female

DRUGS (1)
  1. DOXIL [Suspect]
     Active Substance: DOXORUBICIN HYDROCHLORIDE
     Indication: PRODUCT USED FOR UNKNOWN INDICATION
     Route: 042
     Dates: start: 201607, end: 201607

REACTIONS (1)
  - Cardiac disorder [Recovered/Resolved]

NARRATIVE: CASE EVENT DATE: 201607
